FAERS Safety Report 11995199 (Version 2)
Quarter: 2019Q4

REPORT INFORMATION
  Report Type: Spontaneous
  Country: US (occurrence: US)
  Receive Date: 20160203
  Receipt Date: 20191213
  Transmission Date: 20200122
  Serious: No
  Sender: FDA-Public Use
  Company Number: US-UCBSA-2015035118

PATIENT
  Age: 59 Year
  Sex: Female

DRUGS (3)
  1. LAMICTAL [Concomitant]
     Active Substance: LAMOTRIGINE
     Indication: SEIZURE
  2. VIMPAT [Suspect]
     Active Substance: LACOSAMIDE
     Dosage: 200 MG 2 TABLETS DAILY
     Dates: start: 20150504
  3. KEPPRA XR [Suspect]
     Active Substance: LEVETIRACETAM
     Indication: SEIZURE
     Dosage: 750 MG 4 TABLETS DAILY
     Dates: start: 20100301

REACTIONS (1)
  - Seizure [Recovered/Resolved]

NARRATIVE: CASE EVENT DATE: 20150827
